FAERS Safety Report 21647996 (Version 4)
Quarter: 2023Q1

REPORT INFORMATION
  Report Type: Report from Study
  Country: IT (occurrence: None)
  Receive Date: 20221128
  Receipt Date: 20230201
  Transmission Date: 20230417
  Serious: Yes (Hospitalization)
  Sender: FDA-Public Use
  Company Number: IT-ROCHE-3224600

PATIENT
  Age: 58 Year
  Sex: Male
  Weight: 67 kg

DRUGS (15)
  1. ATEZOLIZUMAB [Suspect]
     Active Substance: ATEZOLIZUMAB
     Indication: Metastatic renal cell carcinoma
     Dosage: ON 18/MAR/2022, HE RECEIVED THE MOST RECENT DOSE OF STUDY DRUG (1200 MG) PRIOR TO AE.?ON 04/NOV/2022
     Route: 041
     Dates: start: 20210909
  2. ATEZOLIZUMAB [Suspect]
     Active Substance: ATEZOLIZUMAB
     Dosage: START DATE OF MOST RECENT DOSE OF STUDY DRUG PRIOR TO AE/SAE-04/NOV/2022.
     Route: 042
  3. CABOZANTINIB [Suspect]
     Active Substance: CABOZANTINIB
     Indication: Metastatic renal cell carcinoma
     Dosage: ON 27/MAR/2022, HE RECEIVED THE MOST RECENT DOSE OF STUDY DRUG PRIOR TO AE? 08/NOV/2022, HE RECEIVED
     Route: 048
     Dates: start: 20210909
  4. CABOZANTINIB [Suspect]
     Active Substance: CABOZANTINIB
     Dosage: START DATE OF MOST RECENT DOSE OF STUDY DRUG PRIOR TO AE/SAE-08/NOV/2022.?DOSE LAST STUDY DRUG ADMIN
     Route: 048
  5. OXYCODONE [Concomitant]
     Active Substance: OXYCODONE
     Indication: Musculoskeletal pain
     Route: 048
     Dates: start: 20210920
  6. NALOXONE [Concomitant]
     Active Substance: NALOXONE
     Indication: Musculoskeletal pain
     Route: 048
     Dates: start: 20210920
  7. MORPHINE SULFATE [Concomitant]
     Active Substance: MORPHINE SULFATE
     Indication: Analgesic therapy
     Route: 048
     Dates: start: 20210924
  8. POLYETHYLENE GLYCOLS [Concomitant]
     Active Substance: POLYETHYLENE GLYCOLS
     Indication: Laxative supportive care
     Dosage: 1 OTHER
     Route: 048
     Dates: start: 20210924
  9. PREDNISONE [Concomitant]
     Active Substance: PREDNISONE
     Indication: Steroid therapy
     Route: 048
     Dates: start: 20211023
  10. NEBIVOLOL [Concomitant]
     Active Substance: NEBIVOLOL
     Indication: Hypertension
     Route: 048
     Dates: start: 20211023
  11. AMLODIPINE BESYLATE [Concomitant]
     Active Substance: AMLODIPINE BESYLATE
     Indication: Hypertension
     Route: 048
     Dates: start: 20211019
  12. GENTAMICIN [Concomitant]
     Active Substance: GENTAMICIN
     Indication: Palmar-plantar erythrodysaesthesia syndrome
     Dosage: 1 OTHER
     Route: 061
     Dates: start: 20220204
  13. LOPERAMIDE [Concomitant]
     Active Substance: LOPERAMIDE
     Indication: Diarrhoea
     Route: 048
     Dates: start: 20220225
  14. YOVIS [Concomitant]
     Indication: Diarrhoea
     Dosage: 1 OTHER
     Route: 048
     Dates: start: 20220225
  15. ENOXAPARIN [Concomitant]
     Active Substance: ENOXAPARIN
     Indication: Anticoagulant therapy
     Route: 058
     Dates: start: 20220409

REACTIONS (2)
  - Diarrhoea [Recovered/Resolved]
  - Immune-mediated enterocolitis [Recovered/Resolved]

NARRATIVE: CASE EVENT DATE: 20220328
